FAERS Safety Report 7123037-0 (Version None)
Quarter: 2010Q4

REPORT INFORMATION
  Report Type: 
  Country: None (occurrence: None)
  Receive Date: 20101125
  Receipt Date: 20101103
  Transmission Date: 20110411
  Serious: Yes (Hospitalization)
  Sender: FDA-Public Use
  Company Number: DE-AMGEN-DEUCT2010003216

PATIENT

DRUGS (4)
  1. ETANERCEPT [Suspect]
     Indication: RHEUMATOID ARTHRITIS
     Dosage: 50 MG, QWK
     Dates: start: 20100222, end: 20100101
  2. CALCIUM [Concomitant]
     Dosage: UNKNOWN
  3. PREDNISOLONE [Concomitant]
     Dosage: 5MG, FREQUENCY UNKNOWN
  4. ISOZID [Concomitant]
     Dosage: UNKNOWN
     Dates: end: 20101001

REACTIONS (3)
  - KNEE ARTHROPLASTY [None]
  - LUMBAR VERTEBRAL FRACTURE [None]
  - PROCEDURAL COMPLICATION [None]
